FAERS Safety Report 14354703 (Version 1)
Quarter: 2018Q1

REPORT INFORMATION
  Report Type: Other
  Country: ES (occurrence: ES)
  Receive Date: 20180105
  Receipt Date: 20180105
  Transmission Date: 20180509
  Serious: Yes (Other)
  Sender: FDA-Public Use
  Company Number: ES-APOTEX-2017AP023848

PATIENT
  Age: 82 Year
  Sex: Male

DRUGS (4)
  1. LEVETIRACETAM APOTEX COMPRIMIDOS RECUBIERTOS CON PELICULA [Suspect]
     Active Substance: LEVETIRACETAM
     Indication: OFF LABEL USE
  2. LACOSAMIDE. [Suspect]
     Active Substance: LACOSAMIDE
     Indication: OFF LABEL USE
  3. LEVETIRACETAM APOTEX COMPRIMIDOS RECUBIERTOS CON PELICULA [Suspect]
     Active Substance: LEVETIRACETAM
     Indication: EPILEPSY
     Dosage: UNKNOWN DOSE
     Route: 065
  4. LACOSAMIDE. [Suspect]
     Active Substance: LACOSAMIDE
     Indication: STATUS EPILEPTICUS
     Dosage: UNKNOWN DOSE
     Route: 065

REACTIONS (2)
  - Status epilepticus [Unknown]
  - Off label use [Unknown]
